FAERS Safety Report 7770888-5 (Version None)
Quarter: 2011Q3

REPORT INFORMATION
  Report Type: 
  Country: None (occurrence: None)
  Receive Date: 20110922
  Receipt Date: 20100330
  Transmission Date: 20111222
  Serious: No
  Sender: FDA-Public Use
  Company Number: US-ASTRAZENECA-2006UW04462

PATIENT
  Age: 541 Month
  Sex: Male
  Weight: 75.3 kg

DRUGS (33)
  1. LEXAPRO [Concomitant]
     Indication: PSORIATIC ARTHROPATHY
     Dosage: 10-28 MG
     Route: 048
  2. CLONIDINE [Concomitant]
     Dosage: 0.1-3 MG THREE TIMES A DAY
     Route: 048
  3. NITROGLYCERIN [Concomitant]
     Indication: CARDIAC DISORDER
     Dosage: 0.4 - 6.5 MG
     Route: 048
  4. ENBREL [Concomitant]
     Dosage: 25-50 MG
     Route: 030
  5. PAXIL [Concomitant]
     Route: 048
     Dates: start: 20040331
  6. LASIX [Concomitant]
  7. EFFEXOR [Concomitant]
     Dates: end: 20040331
  8. CORGARD [Concomitant]
     Dosage: 20 MG 1 PILL DAILY
     Route: 048
  9. REMERON [Concomitant]
     Dosage: 15-45 MG
     Route: 048
  10. PROPRANOLOL [Concomitant]
     Dates: start: 20040101
  11. REBETOL [Concomitant]
     Dosage: 200 MG DAILY ,5 A DAY
     Dates: start: 20040101
  12. REMERON [Concomitant]
     Indication: WEIGHT INCREASED
     Dates: start: 20040101
  13. HYTRIN [Concomitant]
     Route: 048
  14. TRAZODONE HYDROCHLORIDE [Concomitant]
     Dosage: 100-150 MG
     Route: 048
  15. SEROQUEL [Suspect]
     Indication: INSOMNIA
     Dosage: 100-300 MG DAILY,100 MG ONE TO TWO TABLETS PRN AT NIGHT
     Route: 048
     Dates: start: 20040331, end: 20041201
  16. SEROQUEL [Suspect]
     Dosage: 100 MG 1 TO 2 TABLETS NIGHTLY
     Route: 048
     Dates: start: 20040502
  17. ACCUPRIL [Concomitant]
     Route: 048
  18. ENBREL [Concomitant]
     Dates: start: 20030701
  19. PAXIL [Concomitant]
     Dosage: 20-40 MG
     Route: 048
  20. VISTARIL [Concomitant]
     Indication: INSOMNIA
     Dosage: 50 MG ONE TO TWO   AT  NIGHT PRN
     Dates: start: 20040331
  21. SEROQUEL [Suspect]
     Indication: DEPRESSION
     Dosage: 100-300 MG DAILY,100 MG ONE TO TWO TABLETS PRN AT NIGHT
     Route: 048
     Dates: start: 20040331, end: 20041201
  22. SEROQUEL [Suspect]
     Indication: ANXIETY
     Dosage: 100-300 MG DAILY,100 MG ONE TO TWO TABLETS PRN AT NIGHT
     Route: 048
     Dates: start: 20040331, end: 20041201
  23. SEROQUEL [Suspect]
     Dosage: 100 MG 1 TO 2 TABLETS NIGHTLY
     Route: 048
     Dates: start: 20040502
  24. SEROQUEL [Suspect]
     Dosage: 100 MG 1 TO 2 TABLETS NIGHTLY
     Route: 048
     Dates: start: 20040502
  25. PRILOSEC OTC [Concomitant]
     Indication: DYSPEPSIA
     Route: 048
  26. SPIRONOLACTONE [Concomitant]
     Dosage: 25-50 MG
     Route: 048
  27. KLONOPIN [Concomitant]
     Dates: start: 20040101
  28. KLONOPIN [Concomitant]
     Route: 048
  29. LEVOTHYROXINE SODIUM [Concomitant]
     Indication: HYPOTHYROIDISM
     Dosage: 50-75 MCG
     Route: 048
  30. NEUPOGEN [Concomitant]
     Dates: start: 20040101
  31. HYZAAR [Concomitant]
     Dates: start: 20040101
  32. AVANDAMET [Concomitant]
     Indication: DIABETES MELLITUS
     Dosage: 2/500 MG TWICE A DAILY
     Route: 048
  33. ASPIRIN [Concomitant]
     Dosage: 81-325 MG
     Route: 048

REACTIONS (4)
  - VISION BLURRED [None]
  - DIABETES MELLITUS [None]
  - THYROID DISORDER [None]
  - BLOOD CHOLESTEROL INCREASED [None]
